FAERS Safety Report 7266217-6 (Version None)
Quarter: 2011Q1

REPORT INFORMATION
  Report Type: 
  Country: None (occurrence: None)
  Receive Date: 20110131
  Receipt Date: 20101109
  Transmission Date: 20110831
  Serious: No
  Sender: FDA-Public Use
  Company Number: US-ABBOTT-10P-163-0684278-00

PATIENT
  Sex: Male

DRUGS (1)
  1. LUPRON [Suspect]
     Indication: PRODUCT USED FOR UNKNOWN INDICATION

REACTIONS (5)
  - NIGHT SWEATS [None]
  - BLOOD TESTOSTERONE DECREASED [None]
  - DIZZINESS [None]
  - HOT FLUSH [None]
  - PENIS DISORDER [None]
